FAERS Safety Report 5105307-0 (Version None)
Quarter: 2006Q3

REPORT INFORMATION
  Report Type: 
  Country: None (occurrence: None)
  Receive Date: 20060912
  Receipt Date: 20060831
  Transmission Date: 20061208
  Serious: Yes (Congenital Anomaly, Other)
  Sender: FDA-Public Use
  Company Number: 06IN000816

PATIENT
  Age: 21 Year
  Sex: Female

DRUGS (1)
  1. LITHIUM CARBONATE [Suspect]
     Indication: MANIA
     Dosage: 900 MG, QD,

REACTIONS (6)
  - ANENCEPHALY [None]
  - DRUG EXPOSURE DURING PREGNANCY [None]
  - FOETAL MALFORMATION [None]
  - REFUSAL OF TREATMENT BY PATIENT [None]
  - RETROPLACENTAL HAEMATOMA [None]
  - UNINTENDED PREGNANCY [None]
